FAERS Safety Report 6515981-X (Version None)
Quarter: 2009Q4

REPORT INFORMATION
  Report Type: 
  Country: None (occurrence: None)
  Receive Date: 20091223
  Receipt Date: 20091219
  Transmission Date: 20100525
  Serious: Yes (Death)
  Sender: FDA-Public Use
  Company Number: JP-ELI_LILLY_AND_COMPANY-JP200912004456

PATIENT
  Sex: Male
  Weight: 61.3 kg

DRUGS (12)
  1. DULOXETINE HYDROCHLORIDE [Suspect]
     Indication: DIABETIC NEUROPATHY
     Dosage: 20 MG, DAILY (1/D)
     Route: 048
     Dates: start: 20090206, end: 20090212
  2. DULOXETINE HYDROCHLORIDE [Suspect]
     Dosage: 40 MG, DAILY (1/D)
     Route: 048
     Dates: start: 20090213
  3. NOVORAPID [Concomitant]
     Indication: TYPE 1 DIABETES MELLITUS
     Dosage: 22 IU, DAILY (1/D)
     Route: 058
     Dates: start: 20081023
  4. LEVEMIR [Concomitant]
     Indication: TYPE 1 DIABETES MELLITUS
     Dosage: 16 IU, DAILY (1/D)
     Route: 058
  5. AMLODIN [Concomitant]
     Dosage: 5 MG, DAILY (1/D)
     Route: 048
  6. DIOVAN [Concomitant]
     Dosage: 160 MG, DAILY (1/D)
     Route: 048
  7. SPIRIVA [Concomitant]
     Dosage: 18 UG, DAILY (1/D)
     Route: 055
  8. MEPTIN AIR [Concomitant]
     Dosage: 10 UG, AS NEEDED
     Route: 055
  9. EBASTINE [Concomitant]
     Dosage: 10 MG, AS NEEDED
     Route: 048
     Dates: start: 20081023
  10. CATLEP [Concomitant]
     Dosage: UNK, UNKNOWN
     Route: 062
     Dates: start: 20090205
  11. HARNAL [Concomitant]
     Dosage: 0.2 MG, DAILY (1/D)
     Route: 048
     Dates: start: 20090306
  12. HOKUNALIN [Interacting]
     Dosage: 2 MG, AS NEEDED
     Route: 062
     Dates: start: 20091112

REACTIONS (2)
  - CARDIO-RESPIRATORY ARREST [None]
  - DEATH [None]
